FAERS Safety Report 6146706-8 (Version None)
Quarter: 2009Q2

REPORT INFORMATION
  Report Type: 
  Country: None (occurrence: None)
  Receive Date: 20090407
  Receipt Date: 20090327
  Transmission Date: 20091009
  Serious: Yes (Hospitalization)
  Sender: FDA-Public Use
  Company Number: PHHY2009JP09944

PATIENT
  Age: 79 Year
  Sex: Female

DRUGS (2)
  1. TEGRETOL [Suspect]
     Indication: PAIN
     Dosage: UNK
  2. TEGRETOL [Suspect]
     Indication: TRIGEMINAL NEURALGIA

REACTIONS (3)
  - DRUG INEFFECTIVE [None]
  - PAIN [None]
  - PERIPHERAL NERVE DECOMPRESSION [None]
